FAERS Safety Report 19982423 (Version 2)
Quarter: 2021Q4

REPORT INFORMATION
  Report Type: Report from Study
  Country: US (occurrence: US)
  Receive Date: 20211022
  Receipt Date: 20211104
  Transmission Date: 20220303
  Serious: Yes (Hospitalization)
  Sender: FDA-Public Use
  Company Number: US-JNJFOC-20211034332

PATIENT
  Age: 20 Year
  Sex: Male
  Weight: 46.3 kg

DRUGS (4)
  1. INFLIXIMAB [Suspect]
     Active Substance: INFLIXIMAB
     Indication: Inflammatory bowel disease
     Route: 042
     Dates: start: 20080117, end: 20081010
  2. INFLIXIMAB [Suspect]
     Active Substance: INFLIXIMAB
     Route: 042
     Dates: start: 20151120, end: 20160510
  3. STELARA [Concomitant]
     Active Substance: USTEKINUMAB
     Dates: start: 20130531, end: 20140421
  4. STELARA [Concomitant]
     Active Substance: USTEKINUMAB
     Dates: start: 20190516

REACTIONS (1)
  - Deep vein thrombosis [Recovered/Resolved]

NARRATIVE: CASE EVENT DATE: 20201205
